FAERS Safety Report 9955219 (Version 4)
Quarter: 2014Q2

REPORT INFORMATION
  Report Type: Spontaneous
  Country: JP (occurrence: JP)
  Receive Date: 20140304
  Receipt Date: 20140411
  Transmission Date: 20141212
  Serious: Yes (Hospitalization, Other)
  Sender: FDA-Public Use
  Company Number: JP-PFIZER INC-2014054356

PATIENT
  Age: 66 Year
  Sex: Male
  Weight: 58.1 kg

DRUGS (8)
  1. SUTENT [Suspect]
     Indication: METASTATIC RENAL CELL CARCINOMA
     Dosage: 25 MG, DAILY
     Route: 048
     Dates: start: 20140209, end: 20140219
  2. KYORIN AP 2 [Suspect]
     Indication: NASOPHARYNGITIS
     Dosage: UNK
     Route: 048
     Dates: start: 20140207
  3. TARIVID ORAL [Suspect]
     Indication: NASOPHARYNGITIS
     Dosage: 3 DF (3 TABLETS), 3X/DAY
     Route: 048
     Dates: start: 20140207
  4. NEUZYM [Suspect]
     Indication: NASOPHARYNGITIS
     Dosage: 3 DF (3 TABLETS), 3X/DAY
     Route: 048
     Dates: start: 20140207
  5. LIPITOR [Concomitant]
     Indication: HYPERCHOLESTEROLAEMIA
     Dosage: 10 MG (1 TABLET), DAILY
     Route: 048
     Dates: start: 2013
  6. AMLODIN [Concomitant]
     Route: 048
  7. TANATRIL [Concomitant]
     Route: 048
  8. COCARL [Concomitant]
     Route: 048

REACTIONS (4)
  - Rhabdomyolysis [Recovered/Resolved]
  - Rash [Recovering/Resolving]
  - Loss of consciousness [Unknown]
  - Pyrexia [Recovered/Resolved]
